FAERS Safety Report 7858182 (Version 3)
Quarter: 2015Q2

REPORT INFORMATION
  Report Type: Spontaneous
  Country: US (occurrence: US)
  Receive Date: 20110316
  Receipt Date: 20150525
  Transmission Date: 20150821
  Serious: Yes (Hospitalization, Other)
  Sender: FDA-Public Use
  Company Number: US-JNJFOC-20100808227

PATIENT
  Age: 64 Year
  Sex: Female

DRUGS (3)
  1. LEVAQUIN [Suspect]
     Active Substance: LEVOFLOXACIN
     Indication: SINUSITIS
     Route: 048
     Dates: start: 20011201, end: 20021231
  2. LEVAQUIN [Suspect]
     Active Substance: LEVOFLOXACIN
     Indication: VASOMOTOR RHINITIS
     Route: 048
     Dates: start: 20011201, end: 20021231
  3. ANTIBIOTIC [Suspect]
     Active Substance: UNSPECIFIED INGREDIENT
     Indication: PRODUCT USED FOR UNKNOWN INDICATION
     Route: 065

REACTIONS (5)
  - Muscle spasms [Unknown]
  - Neck pain [Unknown]
  - Anxiety [Unknown]
  - Rotator cuff syndrome [Unknown]
  - Tendonitis [Unknown]

NARRATIVE: CASE EVENT DATE: 200210
